FAERS Safety Report 4480610-6 (Version None)
Quarter: 2004Q4

REPORT INFORMATION
  Report Type: 
  Country: None (occurrence: None)
  Receive Date: 20041019
  Receipt Date: 20041012
  Transmission Date: 20050328
  Serious: Yes (Hospitalization)
  Sender: FDA-Public Use
  Company Number: ZONI002036

PATIENT
  Age: 54 Year
  Sex: Male

DRUGS (3)
  1. EXCEGRAN (ZONISAMIDE) [Suspect]
     Indication: EPILEPSY
     Dosage: 200 MG, ORAL
     Route: 048
     Dates: start: 20040914, end: 20041006
  2. DEPAKENE [Concomitant]
  3. GASTER (FAMOTIDINE) [Concomitant]

REACTIONS (4)
  - LYMPHADENOPATHY [None]
  - PLATELET COUNT DECREASED [None]
  - PYREXIA [None]
  - VOMITING [None]
